FAERS Safety Report 14777531 (Version 2)
Quarter: 2019Q2

REPORT INFORMATION
  Report Type: Spontaneous
  Country: US (occurrence: US)
  Receive Date: 20180419
  Receipt Date: 20190510
  Transmission Date: 20190711
  Serious: No
  Sender: FDA-Public Use
  Company Number: US-PFIZER INC-2018029191

PATIENT
  Age: 5 Year
  Sex: Female
  Weight: 12.25 kg

DRUGS (2)
  1. GENOTROPIN [Suspect]
     Active Substance: SOMATROPIN
     Dosage: 0.5 MG, UNK (0.5MG SIX DAYS A WEEK, NOT ON WEDNESDAY)
     Dates: start: 20180217
  2. GENOTROPIN [Suspect]
     Active Substance: SOMATROPIN
     Indication: GROWTH HORMONE DEFICIENCY
     Dosage: 0.55 MG, 6 DAYS/WEEK
     Dates: start: 201801

REACTIONS (2)
  - Product prescribing error [Unknown]
  - Abdominal pain upper [Recovering/Resolving]
